FAERS Safety Report 7629090-X (Version None)
Quarter: 2011Q3

REPORT INFORMATION
  Report Type: 
  Country: None (occurrence: None)
  Receive Date: 20110722
  Receipt Date: 20110722
  Transmission Date: 20111222
  Serious: No
  Sender: FDA-Public Use
  Company Number: None

PATIENT
  Age: 53 Year
  Sex: Female
  Weight: 43.091 kg

DRUGS (1)
  1. ATELVIA [Suspect]
     Indication: OSTEOPENIA
     Dosage: ONE TABLET
     Route: 048
     Dates: start: 20110720, end: 20110720

REACTIONS (4)
  - JOINT RANGE OF MOTION DECREASED [None]
  - CHEST DISCOMFORT [None]
  - BACK PAIN [None]
  - MUSCULOSKELETAL PAIN [None]
